FAERS Safety Report 7314828-1 (Version None)
Quarter: 2011Q1

REPORT INFORMATION
  Report Type: 
  Country: None (occurrence: None)
  Receive Date: 20110225
  Receipt Date: 20110110
  Transmission Date: 20110831
  Serious: No
  Sender: FDA-Public Use
  Company Number: US-MYLANLABS-2010S1023751

PATIENT
  Age: 36 Year
  Sex: Female

DRUGS (1)
  1. AMNESTEEM [Suspect]
     Indication: ACNE
     Route: 048
     Dates: start: 20101012, end: 20101220

REACTIONS (13)
  - PRURITUS GENERALISED [None]
  - LIP EXFOLIATION [None]
  - DIARRHOEA [None]
  - ABDOMINAL PAIN UPPER [None]
  - EPISTAXIS [None]
  - ACNE [None]
  - BURNING SENSATION [None]
  - OCULAR HYPERAEMIA [None]
  - MADAROSIS [None]
  - LIP DRY [None]
  - PSORIASIS [None]
  - SKIN EXFOLIATION [None]
  - DRY EYE [None]
